FAERS Safety Report 7268928-5 (Version None)
Quarter: 2011Q1

REPORT INFORMATION
  Report Type: 
  Country: None (occurrence: None)
  Receive Date: 20110201
  Receipt Date: 20110125
  Transmission Date: 20110831
  Serious: Yes (Hospitalization, Other)
  Sender: FDA-Public Use
  Company Number: GB-MERCK-1101USA03114

PATIENT
  Age: 81 Year
  Sex: Male

DRUGS (9)
  1. AMOXICILLIN [Concomitant]
     Route: 065
  2. BORTEZOMIB [Concomitant]
     Route: 065
  3. ALENDRONIC ACID [Concomitant]
     Route: 065
  4. DECADRON [Suspect]
     Route: 048
     Dates: start: 20110107, end: 20110108
  5. SUCROSE [Concomitant]
     Route: 065
  6. BISOPROLOL [Concomitant]
     Route: 065
  7. ENOXAPARIN SODIUM [Concomitant]
     Route: 065
  8. AMOXICILLIN AND CLAVULANATE POTASSIUM [Concomitant]
     Route: 065
  9. ACETAMINOPHEN [Concomitant]
     Route: 065

REACTIONS (5)
  - MELAENA [None]
  - UPPER GASTROINTESTINAL HAEMORRHAGE [None]
  - DYSPNOEA [None]
  - COUGH [None]
  - ALANINE AMINOTRANSFERASE INCREASED [None]
